FAERS Safety Report 21492974 (Version 2)
Quarter: 2023Q1

REPORT INFORMATION
  Report Type: Spontaneous
  Country: JP (occurrence: JP)
  Receive Date: 20221021
  Receipt Date: 20230224
  Transmission Date: 20230417
  Serious: Yes (Death, Other)
  Sender: FDA-Public Use
  Company Number: JP-JAZZ-2022-JP-033113

PATIENT
  Age: 59 Year
  Sex: Female
  Weight: 48 kg

DRUGS (2)
  1. DEFITELIO [Suspect]
     Active Substance: DEFIBROTIDE SODIUM
     Indication: Venoocclusive liver disease
     Dosage: UNK
     Route: 042
     Dates: start: 20220902, end: 20221010
  2. DEFITELIO [Suspect]
     Active Substance: DEFIBROTIDE SODIUM
     Dosage: 25 MILLIGRAM/KILOGRAM
     Route: 042
     Dates: start: 20220724, end: 20221009

REACTIONS (1)
  - Idiopathic pneumonia syndrome [Fatal]

NARRATIVE: CASE EVENT DATE: 20220101
